FAERS Safety Report 7575668-1 (Version None)
Quarter: 2011Q2

REPORT INFORMATION
  Report Type: 
  Country: None (occurrence: None)
  Receive Date: 20110628
  Receipt Date: 20110617
  Transmission Date: 20111010
  Serious: Yes (Other)
  Sender: FDA-Public Use
  Company Number: CH-BIOGENIDEC-2010BI043060

PATIENT
  Age: 47 Year
  Sex: Male

DRUGS (9)
  1. INDERAL [Concomitant]
  2. LORAZEPAM [Concomitant]
  3. ATORVASTATIN CALCIUM [Concomitant]
  4. MAGNESIUM [Concomitant]
  5. TYSABRI [Suspect]
     Indication: RELAPSING-REMITTING MULTIPLE SCLEROSIS
     Route: 042
     Dates: start: 20061101, end: 20101025
  6. PANTOPRAZOLE [Concomitant]
  7. MOTILIUM [Concomitant]
  8. SURMONTIL [Concomitant]
  9. LEXOTANIL [Concomitant]

REACTIONS (2)
  - DEPRESSION [None]
  - OPTIC NEURITIS [None]
